FAERS Safety Report 24559330 (Version 3)
Quarter: 2025Q3

REPORT INFORMATION
  Report Type: Spontaneous
  Country: JP (occurrence: JP)
  Receive Date: 20241029
  Receipt Date: 20250805
  Transmission Date: 20251020
  Serious: Yes (Death, Other)
  Sender: NOVARTIS
  Company Number: JP-002147023-NVSJ2024JP012683

PATIENT
  Age: 68 Year
  Sex: Male

DRUGS (1)
  1. TISAGENLECLEUCEL [Suspect]
     Active Substance: TISAGENLECLEUCEL
     Indication: Diffuse large B-cell lymphoma
     Route: 065

REACTIONS (10)
  - Diffuse large B-cell lymphoma [Fatal]
  - Malignant neoplasm progression [Fatal]
  - Immune effector cell-associated HLH-like syndrome [Recovering/Resolving]
  - Hyperferritinaemia [Recovering/Resolving]
  - Transaminases increased [Recovering/Resolving]
  - Hyperbilirubinaemia [Recovering/Resolving]
  - Hypofibrinogenaemia [Recovering/Resolving]
  - Cytokine release syndrome [Recovered/Resolved]
  - Bone marrow failure [Unknown]
  - Pancytopenia [Not Recovered/Not Resolved]
